FAERS Safety Report 7078927-4 (Version None)
Quarter: 2010Q4

REPORT INFORMATION
  Report Type: 
  Country: None (occurrence: None)
  Receive Date: 20101102
  Receipt Date: 20101026
  Transmission Date: 20110411
  Serious: Yes (Death, Other)
  Sender: FDA-Public Use
  Company Number: US-PFIZER INC-2010047079

PATIENT
  Sex: Male

DRUGS (2)
  1. CHANTIX [Suspect]
     Indication: SMOKING CESSATION THERAPY
     Dosage: 1 MG, UNK
     Dates: start: 20071227
  2. NAPROXEN [Concomitant]
     Indication: ARTHRALGIA
     Dosage: UNK
     Dates: start: 20071201, end: 20090101

REACTIONS (5)
  - ABDOMINAL DISCOMFORT [None]
  - ABNORMAL DREAMS [None]
  - AGGRESSION [None]
  - COMPLETED SUICIDE [None]
  - MOOD SWINGS [None]
